FAERS Safety Report 11045241 (Version 1)
Quarter: 2015Q2

REPORT INFORMATION
  Report Type: Spontaneous
  Country: US (occurrence: US)
  Receive Date: 20150417
  Receipt Date: 20150417
  Transmission Date: 20150821
  Serious: Yes (Hospitalization)
  Sender: FDA-Public Use
  Company Number: US-PFIZER INC-2015128334

PATIENT
  Age: 78 Year
  Sex: Female
  Weight: 82 kg

DRUGS (2)
  1. LYRICA [Suspect]
     Active Substance: PREGABALIN
     Indication: PAIN IN EXTREMITY
  2. LYRICA [Suspect]
     Active Substance: PREGABALIN
     Indication: HYPOAESTHESIA
     Dosage: 25 MG, 4X/DAY

REACTIONS (8)
  - Limb discomfort [Unknown]
  - Dizziness [Unknown]
  - Weight increased [Unknown]
  - Paraesthesia [Unknown]
  - Vision blurred [Recovered/Resolved]
  - Muscular weakness [Unknown]
  - Pyrexia [Unknown]
  - Asthenia [Unknown]
